FAERS Safety Report 25571152 (Version 1)
Quarter: 2025Q3

REPORT INFORMATION
  Report Type: Other
  Country: US (occurrence: US)
  Receive Date: 20250717
  Receipt Date: 20250717
  Transmission Date: 20251021
  Serious: Yes (Hospitalization)
  Sender: ANI
  Company Number: US-ANIPHARMA-023549

PATIENT
  Sex: Male

DRUGS (6)
  1. LORAZEPAM [Suspect]
     Active Substance: LORAZEPAM
     Indication: Psychotic disorder
  2. CARBAMAZEPINE [Suspect]
     Active Substance: CARBAMAZEPINE
     Indication: Psychotic disorder
  3. HALOPERIDOL [Concomitant]
     Active Substance: HALOPERIDOL
     Indication: Psychotic disorder
  4. BUPROPION [Concomitant]
     Active Substance: BUPROPION
     Indication: Psychotic disorder
  5. OLANZAPINE [Concomitant]
     Active Substance: OLANZAPINE
     Indication: Psychotic disorder
  6. GUANFACINE [Concomitant]
     Active Substance: GUANFACINE
     Indication: Product used for unknown indication

REACTIONS (1)
  - Condition aggravated [Unknown]
